FAERS Safety Report 9251528 (Version 25)
Quarter: 2015Q2

REPORT INFORMATION
  Report Type: Spontaneous
  Country: US (occurrence: US)
  Receive Date: 20130424
  Receipt Date: 20150429
  Transmission Date: 20150821
  Serious: Yes (Hospitalization, Other)
  Sender: FDA-Public Use
  Company Number: US-JNJFOC-20130408010

PATIENT
  Age: 28 Year
  Sex: Female
  Weight: 60.15 kg

DRUGS (7)
  1. TYLENOL EXTRA STRENGTH [Suspect]
     Active Substance: ACETAMINOPHEN
     Indication: PAIN
     Route: 048
     Dates: start: 2011
  2. TYLENOL PM [Suspect]
     Active Substance: ACETAMINOPHEN\DIPHENHYDRAMINE
     Indication: SEDATIVE THERAPY
     Route: 048
     Dates: start: 20110923
  3. LEXAPRO [Concomitant]
     Active Substance: ESCITALOPRAM OXALATE
     Indication: PRODUCT USED FOR UNKNOWN INDICATION
     Route: 065
  4. TYLENOL PM [Suspect]
     Active Substance: ACETAMINOPHEN\DIPHENHYDRAMINE
     Indication: PAIN
     Route: 048
     Dates: start: 20110923
  5. TYLENOL EXTRA STRENGTH [Suspect]
     Active Substance: ACETAMINOPHEN
     Indication: SUICIDAL IDEATION
     Route: 048
     Dates: start: 2011
  6. XANAX [Suspect]
     Active Substance: ALPRAZOLAM
     Indication: PRODUCT USED FOR UNKNOWN INDICATION
     Route: 065
  7. DEPAKOTE [Concomitant]
     Active Substance: DIVALPROEX SODIUM
     Indication: HALLUCINATION
     Route: 065

REACTIONS (16)
  - Dizziness [Unknown]
  - Vertigo [Unknown]
  - Blood glucose increased [None]
  - Joint swelling [None]
  - Renal injury [Not Recovered/Not Resolved]
  - Confusional state [Unknown]
  - Intentional product misuse [Unknown]
  - Acute hepatic failure [Recovered/Resolved]
  - Migraine [Unknown]
  - Bone disorder [None]
  - Hepatic failure [Not Recovered/Not Resolved]
  - Hepatotoxicity [Unknown]
  - Overdose [Unknown]
  - Gastrointestinal disorder [None]
  - Arthralgia [None]
  - Insomnia [None]

NARRATIVE: CASE EVENT DATE: 201109
